FAERS Safety Report 12486981 (Version 1)
Quarter: 2016Q2

REPORT INFORMATION
  Report Type: Spontaneous
  Country: US (occurrence: None)
  Receive Date: 20160621
  Receipt Date: 20160621
  Transmission Date: 20160815
  Serious: No
  Sender: FDA-Public Use
  Company Number: None

PATIENT
  Age: 55 Year
  Sex: Female

DRUGS (1)
  1. GLEEVEC [Suspect]
     Active Substance: IMATINIB MESYLATE
     Indication: PRODUCT USED FOR UNKNOWN INDICATION
     Route: 048
     Dates: start: 20070620

REACTIONS (5)
  - Anxiety [None]
  - Vomiting [None]
  - Thyroid hormones decreased [None]
  - Depression [None]
  - Nausea [None]

NARRATIVE: CASE EVENT DATE: 20150620
